FAERS Safety Report 8279852-3 (Version None)
Quarter: 2012Q2

REPORT INFORMATION
  Report Type: 
  Country: None (occurrence: None)
  Receive Date: 20120412
  Receipt Date: 20111230
  Transmission Date: 20120825
  Serious: No
  Sender: FDA-Public Use
  Company Number: US-ASTRAZENECA-2012SE00417

PATIENT
  Age: 56 Year
  Sex: Female

DRUGS (3)
  1. SYMBICORT [Concomitant]
  2. NEXIUM [Suspect]
     Route: 048
  3. CRESTOR [Concomitant]

REACTIONS (3)
  - OESOPHAGEAL PAIN [None]
  - FEELING ABNORMAL [None]
  - DRUG DOSE OMISSION [None]
